FAERS Safety Report 23484241 (Version 4)
Quarter: 2024Q2

REPORT INFORMATION
  Report Type: Spontaneous
  Country: FR (occurrence: FR)
  Receive Date: 20240206
  Receipt Date: 20240506
  Transmission Date: 20240716
  Serious: Yes (Other)
  Sender: FDA-Public Use
  Company Number: FR-VIIV HEALTHCARE LIMITED-FR2023EME167104

PATIENT
  Age: 56 Year
  Sex: Male
  Weight: 90 kg

DRUGS (9)
  1. RITONAVIR [Suspect]
     Active Substance: RITONAVIR
     Indication: HIV infection
     Dosage: DRUG START DATE: 2023
     Route: 048
     Dates: end: 20231107
  2. RITONAVIR [Suspect]
     Active Substance: RITONAVIR
     Indication: HIV infection
     Route: 048
     Dates: start: 20230620, end: 202310
  3. PREZISTA [Suspect]
     Active Substance: DARUNAVIR ETHANOLATE
     Indication: HIV infection
     Route: 048
     Dates: start: 20230620, end: 20231107
  4. PREZISTA [Suspect]
     Active Substance: DARUNAVIR ETHANOLATE
     Indication: HIV infection
     Dosage: DRUG END DATE: 2023
     Route: 048
     Dates: start: 202305
  5. TIVICAY [Suspect]
     Active Substance: DOLUTEGRAVIR SODIUM
     Indication: Renal failure
     Dosage: DRUG START DATE: 2023
     Route: 048
     Dates: end: 20231107
  6. TIVICAY [Suspect]
     Active Substance: DOLUTEGRAVIR SODIUM
     Indication: Renal failure
     Route: 065
     Dates: start: 202305, end: 202310
  7. LAMIVUDINE [Suspect]
     Active Substance: LAMIVUDINE
     Indication: HIV infection
     Route: 048
     Dates: start: 20230620, end: 20231107
  8. LAMIVUDINE [Suspect]
     Active Substance: LAMIVUDINE
     Indication: HIV infection
     Dosage: DRUG END DATE: 2023
     Route: 048
     Dates: start: 202305
  9. AMLODIPINE [Concomitant]
     Active Substance: AMLODIPINE BESYLATE
     Indication: Hypertension
     Route: 048
     Dates: start: 20230829, end: 20230829

REACTIONS (5)
  - Irritability [Recovering/Resolving]
  - Verbal abuse [Recovering/Resolving]
  - Weight increased [Recovered/Resolved]
  - Product use in unapproved indication [Unknown]
  - Chronic obstructive pulmonary disease [Unknown]

NARRATIVE: CASE EVENT DATE: 20230620
